FAERS Safety Report 20363074 (Version 1)
Quarter: 2022Q1

REPORT INFORMATION
  Report Type: Spontaneous
  Country: ID (occurrence: ID)
  Receive Date: 20220121
  Receipt Date: 20220121
  Transmission Date: 20220423
  Serious: Yes (Other)
  Sender: FDA-Public Use
  Company Number: ID-NOVARTISPH-NVSC2022ID003283

PATIENT
  Sex: Female

DRUGS (3)
  1. BROLUCIZUMAB [Suspect]
     Active Substance: BROLUCIZUMAB
     Indication: Product used for unknown indication
     Dosage: UNK
     Route: 065
     Dates: start: 202110
  2. BROLUCIZUMAB [Suspect]
     Active Substance: BROLUCIZUMAB
     Dosage: UNK
     Route: 065
     Dates: start: 202111
  3. VITREOLENT [Concomitant]
     Indication: Product used for unknown indication
     Dosage: UNK
     Route: 065

REACTIONS (9)
  - Chorioretinitis [Not Recovered/Not Resolved]
  - Retinal vasculitis [Not Recovered/Not Resolved]
  - Detachment of retinal pigment epithelium [Unknown]
  - Retinal degeneration [Unknown]
  - Subretinal fibrosis [Unknown]
  - Vitreal cells [Unknown]
  - Retinal perivascular sheathing [Unknown]
  - Vitreous floaters [Unknown]
  - Retinal scar [Unknown]

NARRATIVE: CASE EVENT DATE: 20211231
